FAERS Safety Report 8373795-2 (Version None)
Quarter: 2012Q2

REPORT INFORMATION
  Report Type: 
  Country: None (occurrence: None)
  Receive Date: 20120521
  Receipt Date: 20120511
  Transmission Date: 20120825
  Serious: Yes (Other)
  Sender: FDA-Public Use
  Company Number: US-ASTRAZENECA-2012SE27277

PATIENT
  Age: 62 Year
  Sex: Female

DRUGS (5)
  1. NEXIUM [Suspect]
     Dosage: EVERY OTHER DAY
     Route: 048
  2. TOPROL-XL [Suspect]
     Route: 048
  3. PREDNISONE [Concomitant]
  4. NEXIUM [Suspect]
     Dosage: EVERY DAY
     Route: 048
  5. RHINOCORT [Suspect]
     Route: 045

REACTIONS (3)
  - OPTIC ISCHAEMIC NEUROPATHY [None]
  - TEMPORAL ARTERITIS [None]
  - MEMORY IMPAIRMENT [None]
